FAERS Safety Report 10047685 (Version 1)
Quarter: 2014Q1

REPORT INFORMATION
  Report Type: Spontaneous
  Country: US (occurrence: None)
  Receive Date: 20140328
  Receipt Date: 20140328
  Transmission Date: 20141002
  Serious: Yes (Hospitalization)
  Sender: FDA-Public Use
  Company Number: None

PATIENT
  Age: 52 Year
  Sex: Female
  Weight: 60 kg

DRUGS (1)
  1. LEVOFLOXACIN [Suspect]
     Indication: PNEUMONIA
     Route: 048
     Dates: start: 20140312, end: 20140313

REACTIONS (13)
  - Mood altered [None]
  - Hallucination [None]
  - Nervousness [None]
  - Headache [None]
  - Insomnia [None]
  - Oral candidiasis [None]
  - Pyrexia [None]
  - Tremor [None]
  - Confusional state [None]
  - Depression [None]
  - Fatigue [None]
  - Ocular icterus [None]
  - Liver disorder [None]
